FAERS Safety Report 20135845 (Version 1)
Quarter: 2021Q4

REPORT INFORMATION
  Report Type: Report from Study
  Country: US (occurrence: US)
  Receive Date: 20211201
  Receipt Date: 20211201
  Transmission Date: 20220303
  Serious: Yes (Other)
  Sender: FDA-Public Use
  Company Number: US-GLAXOSMITHKLINE-2018-TSO1411-US

PATIENT
  Sex: Female

DRUGS (3)
  1. NIRAPARIB [Suspect]
     Active Substance: NIRAPARIB
     Indication: Ovarian cancer
     Dosage: 200 MG, DAILY
     Route: 048
     Dates: start: 20181011, end: 2018
  2. NIRAPARIB [Suspect]
     Active Substance: NIRAPARIB
     Indication: Breast cancer female
     Dosage: 100 MG, DAILY
     Route: 048
     Dates: start: 20181011, end: 20181220
  3. NIRAPARIB [Suspect]
     Active Substance: NIRAPARIB
     Dosage: 100 MG, QD
     Dates: start: 20190115

REACTIONS (9)
  - Wrist fracture [Recovered/Resolved]
  - Recurrent cancer [Unknown]
  - Abdominal hernia [Unknown]
  - Asthenia [Unknown]
  - Blood pressure increased [Unknown]
  - Headache [Unknown]
  - Hypertension [Unknown]
  - Palpitations [Unknown]
  - Underdose [Unknown]

NARRATIVE: CASE EVENT DATE: 20180101
